FAERS Safety Report 9826830 (Version 1)
Quarter: 2013Q4

REPORT INFORMATION
  Report Type: Spontaneous
  Country: US (occurrence: None)
  Receive Date: 20131120
  Receipt Date: 20131120
  Transmission Date: 20140711
  Serious: Yes (Hospitalization)
  Sender: FDA-Public Use
  Company Number: A-US2013-86572

PATIENT
  Age: 69 Year
  Sex: Male

DRUGS (11)
  1. VENTAVIS [Suspect]
     Indication: PULMONARY ARTERIAL HYPERTENSION
     Dates: start: 20130712
  2. LETAIRIS (AMBRISENTAN) (TABLETS) [Concomitant]
  3. COUMADIN (WARFARIN SODIUM) [Concomitant]
  4. ALDACTONE (SPIRONOLACTONE) [Concomitant]
  5. ACETYLSALICYLIC ACID (ACETYLSALICYLIC ACID) [Concomitant]
  6. CITALOPRAM (CITALOPRAM) [Concomitant]
  7. FUROSEMIDE (FUROSEMIDE) [Concomitant]
  8. METFORMIN (METFORMIN) [Concomitant]
  9. OXYGEN (OXYGEN) [Concomitant]
  10. METOLAZONE (METOLAZONE) [Concomitant]
  11. SODIUM BICARBONATE (SODIUM BICARBONATE) [Concomitant]

REACTIONS (4)
  - Oedema [None]
  - Headache [None]
  - Dyspnoea [None]
  - Oedema peripheral [None]
